FAERS Safety Report 5132716-6 (Version None)
Quarter: 2006Q4

REPORT INFORMATION
  Report Type: 
  Country: None (occurrence: None)
  Receive Date: 20061023
  Receipt Date: 20051025
  Transmission Date: 20070319
  Serious: Yes (Hospitalization)
  Sender: FDA-Public Use
  Company Number: GB-GLAXOSMITHKLINE-B0399220A

PATIENT
  Sex: Male

DRUGS (2)
  1. PAROXETINE HCL [Suspect]
     Route: 065
  2. ACETAMINOPHEN W/ CODEINE [Suspect]
     Route: 065

REACTIONS (8)
  - APPETITE DISORDER [None]
  - DISTURBANCE IN ATTENTION [None]
  - DRUG WITHDRAWAL SYNDROME [None]
  - HEADACHE [None]
  - NIGHTMARE [None]
  - OVERDOSE [None]
  - POOR QUALITY SLEEP [None]
  - SUICIDAL IDEATION [None]
